FAERS Safety Report 8849101 (Version 1)
Quarter: 2012Q4

REPORT INFORMATION
  Report Type: 
  Country: US (occurrence: US)
  Receive Date: 20121019
  Receipt Date: 20121019
  Transmission Date: 20130627
  Serious: Yes (Other)
  Sender: FDA-Public Use
  Company Number: US-PAR PHARMACEUTICAL, INC-2012SCPR004657

PATIENT

DRUGS (8)
  1. TRAMADOL [Suspect]
     Indication: NEURALGIA
     Dosage: 300-400 mg/day + 600-800 mg/day
     Route: 065
  2. VENLAFAXINE HYDROCHLORIDE [Interacting]
     Indication: DEPRESSION
     Dosage: 300 mg, / day
     Route: 065
  3. SERTRALINE [Interacting]
     Indication: DEPRESSION
     Dosage: 50 mg, / day
     Route: 065
  4. LAMOTRIGINE [Concomitant]
     Indication: EPILEPSY
     Dosage: 200 mg, / day
     Route: 065
  5. LAMOTRIGINE [Concomitant]
     Dosage: 300 mg, / day
     Route: 065
  6. LAMOTRIGINE [Concomitant]
     Dosage: 200 mg, / day
     Route: 065
  7. OXCARBAZEPINE [Concomitant]
     Indication: EPILEPSY
     Dosage: UNK, Unknown
     Route: 065
  8. PHENYTOIN [Concomitant]
     Indication: EPILEPSY
     Dosage: 200 mg, / day
     Route: 065

REACTIONS (6)
  - Epilepsy [Recovered/Resolved]
  - Drug interaction [Unknown]
  - Toxicity to various agents [Recovering/Resolving]
  - Depression [Recovering/Resolving]
  - Drug dependence [Recovered/Resolved]
  - Drug abuse [Recovered/Resolved]
